FAERS Safety Report 20841789 (Version 2)
Quarter: 2022Q2

REPORT INFORMATION
  Report Type: Spontaneous
  Country: US (occurrence: US)
  Receive Date: 20220518
  Receipt Date: 20220603
  Transmission Date: 20220721
  Serious: Yes (Death, Hospitalization)
  Sender: FDA-Public Use
  Company Number: US-ABBVIE-22K-163-4398683-00

PATIENT
  Sex: Male
  Weight: 63.560 kg

DRUGS (5)
  1. IMBRUVICA [Suspect]
     Active Substance: IBRUTINIB
     Indication: Neoplasm malignant
     Route: 048
     Dates: start: 2012
  2. IMBRUVICA [Suspect]
     Active Substance: IBRUTINIB
     Indication: Chronic lymphocytic leukaemia
     Route: 048
     Dates: start: 2022
  3. PFIZER-BIONTECH COVID-19 VACCINE [Concomitant]
     Active Substance: TOZINAMERAN
     Indication: COVID-19 immunisation
     Route: 030
     Dates: start: 2021, end: 2021
  4. PFIZER-BIONTECH COVID-19 VACCINE [Concomitant]
     Active Substance: TOZINAMERAN
     Route: 030
     Dates: start: 2021, end: 2021
  5. PFIZER-BIONTECH COVID-19 VACCINE [Concomitant]
     Active Substance: TOZINAMERAN
     Route: 030
     Dates: start: 2021, end: 2021

REACTIONS (11)
  - Acute respiratory failure [Fatal]
  - Sarcopenia [Fatal]
  - Mobility decreased [Recovered/Resolved]
  - Respiration abnormal [Recovered/Resolved]
  - Malnutrition [Fatal]
  - Dysphagia [Fatal]
  - Weight decreased [Not Recovered/Not Resolved]
  - Dysphagia [Not Recovered/Not Resolved]
  - Feeding disorder [Not Recovered/Not Resolved]
  - Mobility decreased [Not Recovered/Not Resolved]
  - Atrial fibrillation [Recovered/Resolved]

NARRATIVE: CASE EVENT DATE: 20190101
